FAERS Safety Report 10953696 (Version 1)
Quarter: 2015Q1

REPORT INFORMATION
  Report Type: Spontaneous
  Country: US (occurrence: None)
  Receive Date: 20150323
  Receipt Date: 20150323
  Transmission Date: 20150721
  Serious: No
  Sender: FDA-Public Use
  Company Number: VIT-2015-00177

PATIENT
  Age: 38 Year
  Sex: Male
  Weight: 71.5 kg

DRUGS (9)
  1. NOVOLOG [Concomitant]
     Active Substance: INSULIN ASPART
  2. TRAZODONE [Concomitant]
     Active Substance: TRAZODONE HYDROCHLORIDE
  3. VELPHORO [Suspect]
     Active Substance: FERRIC OXYHYDROXIDE
     Indication: HYPERPHOSPHATAEMIA
     Route: 048
     Dates: start: 20140722
  4. AMLODIPINE [Concomitant]
     Active Substance: AMLODIPINE BESYLATE
  5. LANTUS [Concomitant]
     Active Substance: INSULIN GLARGINE
  6. SIMVASTATIN. [Concomitant]
     Active Substance: SIMVASTATIN
  7. PRORENAL MULTIVATAMINS (LIMAPROST) [Concomitant]
  8. CARVEDILOL. [Concomitant]
     Active Substance: CARVEDILOL
  9. NEURONTIN [Concomitant]
     Active Substance: GABAPENTIN

REACTIONS (1)
  - Tooth discolouration [None]

NARRATIVE: CASE EVENT DATE: 20150122
